FAERS Safety Report 4720885-9 (Version None)
Quarter: 2005Q3

REPORT INFORMATION
  Report Type: 
  Country: None (occurrence: None)
  Receive Date: 20050720
  Receipt Date: 20050707
  Transmission Date: 20060218
  Serious: Yes (Life-Threatening, Other)
  Sender: FDA-Public Use
  Company Number: HQWYE042307JUL05

PATIENT
  Sex: Female

DRUGS (4)
  1. RHINADVIL (IBUPROFEN/PSEUDOEPHEDRINE HYDROCHLORIDE, TABLET) [Suspect]
     Dosage: ORAL
     Route: 048
     Dates: start: 20050105, end: 20050105
  2. MAXILASE 3000                     (ALPHA-AMYLASE,) [Suspect]
     Dates: start: 20050105, end: 20050105
  3. OROPIVALONE                                  (BACITRACIN ZINC/CHLORMET [Suspect]
     Dates: start: 20050105, end: 20050105
  4. AMOXICILLIN [Concomitant]

REACTIONS (2)
  - DYSPNOEA [None]
  - SKIN DISCOMFORT [None]
